FAERS Safety Report 12957958 (Version 1)
Quarter: 2016Q4

REPORT INFORMATION
  Report Type: Spontaneous
  Country: US (occurrence: US)
  Receive Date: 20161119
  Receipt Date: 20161119
  Transmission Date: 20170207
  Serious: Yes (Other)
  Sender: FDA-Public Use
  Company Number: US-009507513-1611USA005923

PATIENT
  Age: 24 Year
  Sex: Female
  Weight: 95.24 kg

DRUGS (8)
  1. ZYRTEC [Concomitant]
     Active Substance: CETIRIZINE HYDROCHLORIDE
  2. VALIUM [Concomitant]
     Active Substance: DIAZEPAM
  3. CLARITIN [Concomitant]
     Active Substance: LORATADINE
  4. NEXPLANON [Suspect]
     Active Substance: ETONOGESTREL
     Indication: CONTRACEPTION
     Dosage: UNK,LEFT ARM IMPLANT,EVERY 3 YEARS
     Dates: start: 20150204
  5. HYDROCORTISONE. [Concomitant]
     Active Substance: HYDROCORTISONE
  6. HYDROXYZINE [Concomitant]
     Active Substance: HYDROXYZINE\HYDROXYZINE HYDROCHLORIDE
  7. NAPROXEN. [Concomitant]
     Active Substance: NAPROXEN
  8. TRAMADOL HYDROCHLORIDE. [Concomitant]
     Active Substance: TRAMADOL HYDROCHLORIDE

REACTIONS (8)
  - Menstrual disorder [Unknown]
  - Aggression [Unknown]
  - Depression [Unknown]
  - Hormone level abnormal [Unknown]
  - Mood swings [Unknown]
  - Loss of libido [Unknown]
  - Liver injury [Unknown]
  - Hepatitis [Unknown]

NARRATIVE: CASE EVENT DATE: 2015
